FAERS Safety Report 6093124-7 (Version None)
Quarter: 2009Q1

REPORT INFORMATION
  Report Type: 
  Country: None (occurrence: None)
  Receive Date: 20090226
  Receipt Date: 20090216
  Transmission Date: 20090719
  Serious: Yes (Death, Hospitalization)
  Sender: FDA-Public Use
  Company Number: EMADSS2002000844

PATIENT
  Age: 67 Year
  Sex: Male
  Weight: 60 kg

DRUGS (4)
  1. TRAMADOL HCL [Suspect]
     Indication: RIB FRACTURE
     Dosage: 50-100MG
     Route: 048
  2. AZATHIOPRINE [Concomitant]
     Indication: ALVEOLITIS FIBROSING
     Route: 065
  3. PREDNISOLONE [Concomitant]
     Indication: ALVEOLITIS FIBROSING
     Route: 065
  4. NAPROXEN [Concomitant]
     Indication: ARTHRALGIA
     Route: 048

REACTIONS (4)
  - CARDIO-RESPIRATORY ARREST [None]
  - HEPATIC NECROSIS [None]
  - OVERDOSE [None]
  - PULMONARY FIBROSIS [None]
